FAERS Safety Report 6103840-6 (Version None)
Quarter: 2009Q1

REPORT INFORMATION
  Report Type: 
  Country: None (occurrence: None)
  Receive Date: 20090305
  Receipt Date: 20090225
  Transmission Date: 20090719
  Serious: Yes (Hospitalization, Other)
  Sender: FDA-Public Use
  Company Number: US-ROCHE-266730

PATIENT
  Age: 56 Year
  Sex: Male
  Weight: 102.1 kg

DRUGS (6)
  1. VALIUM [Suspect]
     Indication: ANXIETY
     Dosage: OTHER INDICATION: PHOBIA FOR PUBLIC SPEAKING
     Route: 048
     Dates: start: 19661201, end: 19710101
  2. VALIUM [Suspect]
     Route: 048
     Dates: start: 19721201, end: 19970101
  3. VALIUM [Suspect]
     Route: 048
     Dates: end: 20040101
  4. CLONAZEPAM [Suspect]
     Indication: ANXIETY
     Route: 048
     Dates: start: 19970101, end: 20060701
  5. NEURONTIN [Concomitant]
  6. ADVIL [Concomitant]

REACTIONS (9)
  - BACK DISORDER [None]
  - CONVULSION [None]
  - DRUG ABUSE [None]
  - DYSPNOEA [None]
  - FIBROMYALGIA [None]
  - INTERVERTEBRAL DISC PROTRUSION [None]
  - NECK PAIN [None]
  - NIGHTMARE [None]
  - RHABDOMYOLYSIS [None]
